FAERS Safety Report 25718551 (Version 1)
Quarter: 2025Q3

REPORT INFORMATION
  Report Type: Report from Study
  Country: CA (occurrence: CA)
  Receive Date: 20250823
  Receipt Date: 20250823
  Transmission Date: 20251021
  Serious: Yes (Hospitalization, Other)
  Sender: CELLTRION
  Company Number: CA-CELLTRION INC.-2025CA028584

PATIENT

DRUGS (19)
  1. RITUXIMAB [Suspect]
     Active Substance: RITUXIMAB
     Indication: Rheumatoid arthritis
     Route: 040
  2. ACTEMRA [Suspect]
     Active Substance: TOCILIZUMAB
     Indication: Rheumatoid arthritis
     Dosage: 162 MILLIGRAM, 1 EVERY 2 WEEKS
     Route: 058
  3. AZATHIOPRINE [Concomitant]
     Active Substance: AZATHIOPRINE
  4. CALCIUM [Concomitant]
     Active Substance: CALCIUM
  5. FOLIC ACID [Concomitant]
     Active Substance: FOLIC ACID
  6. LEFLUNOMIDE [Concomitant]
     Active Substance: LEFLUNOMIDE
  7. MAGNESIUM [Concomitant]
     Active Substance: MAGNESIUM
  8. MYRBETRIQ [Concomitant]
     Active Substance: MIRABEGRON
  9. PANTOPRAZOLE [Concomitant]
     Active Substance: PANTOPRAZOLE
  10. PREDNISONE [Concomitant]
     Active Substance: PREDNISONE
  11. RISEDRONATE SODIUM [Concomitant]
     Active Substance: RISEDRONATE SODIUM
  12. ROSUVASTATIN [Concomitant]
     Active Substance: ROSUVASTATIN
  13. SULFAMETHOXAZOLE\TRIMETHOPRIM [Concomitant]
     Active Substance: SULFAMETHOXAZOLE\TRIMETHOPRIM
  14. SYNTHROID [Concomitant]
     Active Substance: LEVOTHYROXINE SODIUM
  15. PANTOPRAZOLE MAGNESIUM [Concomitant]
     Active Substance: PANTOPRAZOLE MAGNESIUM
  16. TERIPARATIDE [Concomitant]
     Active Substance: TERIPARATIDE
  17. DULOXETINE [Concomitant]
     Active Substance: DULOXETINE
  18. VITAMIN B12 [Concomitant]
     Active Substance: CYANOCOBALAMIN
  19. VITAMIN D3 [Concomitant]
     Active Substance: CHOLECALCIFEROL

REACTIONS (16)
  - Ataxia [Unknown]
  - Blood creatine phosphokinase increased [Unknown]
  - Chest pain [Unknown]
  - Compression fracture [Unknown]
  - Cushingoid [Unknown]
  - Dental caries [Unknown]
  - Joint effusion [Unknown]
  - Multiple organ dysfunction syndrome [Unknown]
  - Muscle spasticity [Unknown]
  - Neuromyelitis optica spectrum disorder [Unknown]
  - Oligoarthritis [Unknown]
  - Pain in extremity [Unknown]
  - Rheumatoid arthritis [Unknown]
  - Tender joint count [Unknown]
  - Arthralgia [Unknown]
  - Intentional product use issue [Unknown]
